FAERS Safety Report 14791462 (Version 2)
Quarter: 2018Q2

REPORT INFORMATION
  Report Type: Spontaneous
  Country: US (occurrence: US)
  Receive Date: 20180423
  Receipt Date: 20180627
  Transmission Date: 20180711
  Serious: Yes (Hospitalization)
  Sender: FDA-Public Use
  Company Number: US-NOVOPROD-595679

PATIENT
  Age: 50 Year
  Sex: Male
  Weight: 64.2 kg

DRUGS (4)
  1. LEVEMIR [Suspect]
     Active Substance: INSULIN DETEMIR
     Dosage: 12 U IN THE MORNING AND 10 U AT NIGHT
     Route: 058
  2. MARIJUANA [Concomitant]
     Active Substance: CANNABIS SATIVA SUBSP. INDICA TOP
     Indication: IMPAIRED GASTRIC EMPTYING
  3. LEVEMIR [Suspect]
     Active Substance: INSULIN DETEMIR
     Indication: TYPE 1 DIABETES MELLITUS
     Dosage: 12 U, BID
     Route: 058
     Dates: start: 2013
  4. HUMALOG [Concomitant]
     Active Substance: INSULIN LISPRO
     Indication: PRODUCT USED FOR UNKNOWN INDICATION
     Dosage: UNK

REACTIONS (6)
  - Diabetic ketoacidosis [Recovered/Resolved]
  - Diabetic ketoacidosis [Recovered/Resolved]
  - Intentional dose omission [Unknown]
  - Glycosylated haemoglobin increased [Unknown]
  - Haematemesis [Recovered/Resolved]
  - White blood cell count increased [Unknown]

NARRATIVE: CASE EVENT DATE: 20180322
